FAERS Safety Report 7088237-7 (Version None)
Quarter: 2010Q4

REPORT INFORMATION
  Report Type: 
  Country: None (occurrence: None)
  Receive Date: 20101108
  Receipt Date: 20100921
  Transmission Date: 20110411
  Serious: Yes (Hospitalization, Other)
  Sender: FDA-Public Use
  Company Number: US-BAYER-201024725NA

PATIENT
  Age: 14 Year
  Sex: Female
  Weight: 70 kg

DRUGS (10)
  1. YAZ [Suspect]
     Indication: PREMENSTRUAL SYNDROME
     Route: 048
     Dates: start: 20071101, end: 20091001
  2. AZITHROMYCIN [Concomitant]
     Dates: start: 20080501
  3. ADVIL [Concomitant]
  4. WELLBUTRIN [Concomitant]
     Indication: DEPRESSION
     Dates: start: 20080101
  5. NITROFURANTOIN MONO -MC [Concomitant]
     Dates: start: 20100101
  6. HYDROCODONE BITARTRATE [Concomitant]
     Dates: start: 20091101
  7. DICYCLOMINE [Concomitant]
     Dates: start: 20090601
  8. RETIN-A MICRO [Concomitant]
     Dates: start: 20081101
  9. MINOCYCLINE HCL [Concomitant]
     Dates: start: 20071101, end: 20080101
  10. DIFFERIN [Concomitant]
     Dates: start: 20070701, end: 20090801

REACTIONS (11)
  - ABDOMINAL PAIN [None]
  - CHEST PAIN [None]
  - CHOLECYSTITIS CHRONIC [None]
  - CHOLELITHIASIS [None]
  - DEPRESSION [None]
  - DIARRHOEA [None]
  - GALLBLADDER CHOLESTEROLOSIS [None]
  - IRRITABLE BOWEL SYNDROME [None]
  - LYMPHOID TISSUE HYPERPLASIA [None]
  - NAUSEA [None]
  - VOMITING [None]
